FAERS Safety Report 10354140 (Version 2)
Quarter: 2014Q3

REPORT INFORMATION
  Report Type: Spontaneous
  Country: CN (occurrence: CN)
  Receive Date: 20140731
  Receipt Date: 20140812
  Transmission Date: 20150326
  Serious: Yes (Death)
  Sender: FDA-Public Use
  Company Number: CN-BAYER-2014-109767

PATIENT
  Age: 67 Year
  Sex: Male

DRUGS (1)
  1. AVELOX [Suspect]
     Active Substance: MOXIFLOXACIN HYDROCHLORIDE
     Indication: PROSTATITIS
     Dosage: 0.4 G, QD

REACTIONS (4)
  - Dyspnoea [Fatal]
  - Loss of consciousness [Fatal]
  - Ventricular fibrillation [Fatal]
  - Mydriasis [None]
